FAERS Safety Report 5307544-9 (Version None)
Quarter: 2007Q2

REPORT INFORMATION
  Report Type: 
  Country: None (occurrence: None)
  Receive Date: 20070425
  Receipt Date: 20070416
  Transmission Date: 20071010
  Serious: Yes (Hospitalization)
  Sender: FDA-Public Use
  Company Number: ES-ELI_LILLY_AND_COMPANY-ES200703001391

PATIENT
  Age: 37 Year
  Sex: Female

DRUGS (3)
  1. CYMBALTA [Suspect]
     Indication: DEPRESSION
     Dosage: 60 MG, DAILY (1/D)
     Route: 048
     Dates: start: 20060627
  2. CONTRACEPTIVES NOS [Concomitant]
  3. TRIPTIZOL [Concomitant]

REACTIONS (3)
  - CONVULSION [None]
  - PARAESTHESIA [None]
  - TREMOR [None]
